FAERS Safety Report 13835713 (Version 1)
Quarter: 2017Q3

REPORT INFORMATION
  Report Type: Spontaneous
  Country: US (occurrence: US)
  Receive Date: 20170804
  Receipt Date: 20170804
  Transmission Date: 20171127
  Serious: Yes (Other)
  Sender: FDA-Public Use
  Company Number: US-DEPOMED, INC.-US-2017DEP001535

PATIENT

DRUGS (1)
  1. GRALISE [Suspect]
     Active Substance: GABAPENTIN
     Indication: MUSCLE SPASMS
     Dosage: 1800 MG, QD (AFTER SUPPER)
     Route: 048
     Dates: end: 201707

REACTIONS (8)
  - Limb discomfort [Unknown]
  - Oxygen consumption decreased [Unknown]
  - Insomnia [Unknown]
  - Product use in unapproved indication [Recovered/Resolved]
  - Hypotension [Unknown]
  - Hyperhidrosis [Unknown]
  - Weight decreased [Unknown]
  - Drug withdrawal syndrome [Unknown]

NARRATIVE: CASE EVENT DATE: 201707
